FAERS Safety Report 10990489 (Version 2)
Quarter: 2015Q3

REPORT INFORMATION
  Report Type: Spontaneous
  Country: US (occurrence: None)
  Receive Date: 20150330
  Receipt Date: 20150630
  Transmission Date: 20151125
  Serious: Yes (Life-Threatening, Other)
  Sender: FDA-Public Use
  Company Number: US-2015-10766

PATIENT
  Sex: Female

DRUGS (4)
  1. CLONAZEPAM. [Concomitant]
     Active Substance: CLONAZEPAM
  2. ABILIFY MAINTENA [Suspect]
     Active Substance: ARIPIPRAZOLE
     Indication: MAJOR DEPRESSION
     Route: 030
     Dates: start: 201408, end: 201412
  3. ARIPIPRAZOLE (ARIPIPRAZOLE) TABLET, 2MG [Suspect]
     Active Substance: ARIPIPRAZOLE
     Indication: MAJOR DEPRESSION
  4. SELEGILINE [Concomitant]
     Active Substance: SELEGILINE

REACTIONS (4)
  - Intentional overdose [None]
  - Prescribed underdose [None]
  - Suicide attempt [None]
  - Product use issue [None]

NARRATIVE: CASE EVENT DATE: 201408
